FAERS Safety Report 15797224 (Version 1)
Quarter: 2018Q4

REPORT INFORMATION
  Report Type: Spontaneous
  Country: US (occurrence: US)
  Receive Date: 20181226
  Receipt Date: 20181226
  Transmission Date: 20190205
  Serious: No
  Sender: FDA-Public Use
  Company Number: None

PATIENT

DRUGS (3)
  1. ATORVASTATIN CALCIUM. [Suspect]
     Active Substance: ATORVASTATIN CALCIUM
  2. PAROXETINE HCL [Suspect]
     Active Substance: PAROXETINE HYDROCHLORIDE
  3. ROSUVASTATIN 20 MG TAB, 20 MG ACTAVIS/ARROW PHARM [Suspect]
     Active Substance: ROSUVASTATIN

REACTIONS (2)
  - Product dispensing error [None]
  - Wrong product administered [None]
